FAERS Safety Report 22148734 (Version 2)
Quarter: 2023Q2

REPORT INFORMATION
  Report Type: Spontaneous
  Country: US (occurrence: US)
  Receive Date: 20230328
  Receipt Date: 20230628
  Transmission Date: 20230722
  Serious: No
  Sender: FDA-Public Use
  Company Number: US-CTI BIOPHARMA-2023US03380

PATIENT

DRUGS (11)
  1. VONJO [Suspect]
     Active Substance: PACRITINIB
     Indication: Myelodysplastic syndrome
     Dosage: 200 MG, BID
     Route: 048
     Dates: start: 20221227
  2. VONJO [Suspect]
     Active Substance: PACRITINIB
     Dosage: 200 MG, BID
     Route: 048
     Dates: start: 20221227
  3. ONE A DAY [MINERALS NOS;VITAMINS NOS] [Concomitant]
     Indication: Product used for unknown indication
  4. FIBER [Concomitant]
  5. ALBUTEROL SULFATE [Concomitant]
     Active Substance: ALBUTEROL SULFATE
  6. BENADRYL [Concomitant]
     Active Substance: DIPHENHYDRAMINE HYDROCHLORIDE
  7. CEFADROXIL [Concomitant]
     Active Substance: CEFADROXIL
  8. MELATONIN [Concomitant]
     Active Substance: MELATONIN
  9. VITAMINS [Concomitant]
     Active Substance: VITAMINS
  10. TRAMADOL [Concomitant]
     Active Substance: TRAMADOL
  11. METAMUCIL [Concomitant]
     Active Substance: PLANTAGO SEED

REACTIONS (7)
  - Dyspepsia [Unknown]
  - Transfusion [Unknown]
  - Abdominal pain upper [Unknown]
  - Arthralgia [Unknown]
  - Product dose omission issue [Unknown]
  - Off label use [Unknown]
  - Haemoglobin decreased [Unknown]

NARRATIVE: CASE EVENT DATE: 20230112
